FAERS Safety Report 5192294-2 (Version None)
Quarter: 2006Q4

REPORT INFORMATION
  Report Type: 
  Country: None (occurrence: None)
  Receive Date: 20061220
  Receipt Date: 20061212
  Transmission Date: 20070319
  Serious: Yes (Life-Threatening, Hospitalization, Disabling)
  Sender: FDA-Public Use
  Company Number: 237537K06USA

PATIENT
  Age: 52 Year
  Sex: Female

DRUGS (6)
  1. REBIF [Suspect]
     Indication: MULTIPLE SCLEROSIS
     Dosage: 44 MCG, 3 IN 1 WEEKS, SUBCUTANEOUS
     Route: 058
     Dates: start: 20030101
  2. TEGRETOL [Concomitant]
  3. BACLOFEN [Concomitant]
  4. LASIX [Concomitant]
  5. PREVACID [Concomitant]
  6. TRILEPTAL [Concomitant]

REACTIONS (8)
  - APHAGIA [None]
  - CONDITION AGGRAVATED [None]
  - DIAPHRAGMATIC PARALYSIS [None]
  - DIPLEGIA [None]
  - DYSPNOEA [None]
  - PNEUMONIA [None]
  - PROGRESSIVE MULTIPLE SCLEROSIS [None]
  - RESPIRATORY FAILURE [None]
